FAERS Safety Report 15347573 (Version 1)
Quarter: 2018Q3

REPORT INFORMATION
  Report Type: Spontaneous
  Country: US (occurrence: US)
  Receive Date: 20180904
  Receipt Date: 20180904
  Transmission Date: 20181010
  Serious: No
  Sender: FDA-Public Use
  Company Number: US-IPSEN BIOPHARMACEUTICALS, INC.-2018-10316

PATIENT

DRUGS (2)
  1. DYSPORT [Suspect]
     Active Substance: ABOBOTULINUMTOXINA
     Indication: SKIN COSMETIC PROCEDURE
     Dosage: NOT REPORTED
     Route: 065
  2. DYSPORT [Suspect]
     Active Substance: ABOBOTULINUMTOXINA
     Dosage: NOT REPORTED
     Route: 065

REACTIONS (9)
  - Skin irritation [Unknown]
  - Pruritus [Recovered/Resolved]
  - Mass [Recovered/Resolved]
  - Mass [Unknown]
  - Pruritus [Unknown]
  - Skin irritation [Recovered/Resolved]
  - Intentional product misuse [Unknown]
  - Rash pustular [Unknown]
  - Rash pustular [Recovered/Resolved]
